FAERS Safety Report 11502624 (Version 2)
Quarter: 2016Q3

REPORT INFORMATION
  Report Type: Spontaneous
  Country: US (occurrence: US)
  Receive Date: 20150914
  Receipt Date: 20160915
  Transmission Date: 20161109
  Serious: No
  Sender: FDA-Public Use
  Company Number: US-ASTELLAS-2015US022851

PATIENT
  Sex: Male

DRUGS (1)
  1. XTANDI [Suspect]
     Active Substance: ENZALUTAMIDE
     Indication: PROSTATE CANCER
     Route: 065

REACTIONS (6)
  - Night sweats [Unknown]
  - Adverse event [Unknown]
  - Decreased appetite [Unknown]
  - Dyspepsia [Unknown]
  - Bedridden [Not Recovered/Not Resolved]
  - Eructation [Unknown]
